FAERS Safety Report 7049111-5 (Version None)
Quarter: 2010Q4

REPORT INFORMATION
  Report Type: 
  Country: None (occurrence: None)
  Receive Date: 20101018
  Receipt Date: 20101007
  Transmission Date: 20110411
  Serious: Yes (Hospitalization, Disabling)
  Sender: FDA-Public Use
  Company Number: FR-JNJFOC-20101003039

PATIENT
  Sex: Female
  Weight: 72 kg

DRUGS (9)
  1. PREZISTA [Suspect]
     Indication: HIV INFECTION
     Route: 048
  2. AVAMYS [Interacting]
     Indication: RHINITIS ALLERGIC
     Route: 045
  3. SERETIDE [Interacting]
     Indication: ASTHMATIC CRISIS
     Route: 055
  4. NORVIR [Suspect]
     Indication: HIV INFECTION
     Route: 048
  5. ISENTRESS [Concomitant]
     Indication: HIV INFECTION
  6. BRICANYL [Concomitant]
     Indication: ASTHMATIC CRISIS
  7. NAABAK [Concomitant]
     Indication: PRODUCT USED FOR UNKNOWN INDICATION
  8. AERIUS [Concomitant]
     Indication: PRODUCT USED FOR UNKNOWN INDICATION
  9. CRESTOR [Concomitant]
     Indication: PRODUCT USED FOR UNKNOWN INDICATION

REACTIONS (4)
  - CUSHING'S SYNDROME [None]
  - DIABETES MELLITUS [None]
  - DRUG INTERACTION [None]
  - HYPERTENSION [None]
